FAERS Safety Report 16665622 (Version 1)
Quarter: 2019Q3

REPORT INFORMATION
  Report Type: Spontaneous
  Country: US (occurrence: US)
  Receive Date: 20190619
  Receipt Date: 20190619
  Transmission Date: 20191004
  Serious: Yes (Hospitalization, Other)
  Sender: FDA-Public Use
  Company Number: None

PATIENT
  Age: 46 Year
  Sex: Female
  Weight: 86.18 kg

DRUGS (1)
  1. AJOVY [Suspect]
     Active Substance: FREMANEZUMAB-VFRM
     Indication: MIGRAINE
     Route: 058
     Dates: start: 20190529

REACTIONS (10)
  - Asthenia [None]
  - Vomiting [None]
  - Dysstasia [None]
  - Syncope [None]
  - Injection site erythema [None]
  - Injection site inflammation [None]
  - Flushing [None]
  - Cold sweat [None]
  - Nausea [None]
  - Balance disorder [None]

NARRATIVE: CASE EVENT DATE: 20190529
